FAERS Safety Report 5336923-9 (Version None)
Quarter: 2007Q2

REPORT INFORMATION
  Report Type: 
  Country: None (occurrence: None)
  Receive Date: 20070315
  Receipt Date: 20060516
  Transmission Date: 20071010
  Serious: Yes (Hospitalization)
  Sender: FDA-Public Use
  Company Number: PHEH2006US06238

PATIENT
  Sex: Female

DRUGS (1)
  1. TRILEPTAL [Suspect]
     Indication: EPILEPSY
     Dosage: 300 MG, BID, ORAL
     Route: 048
     Dates: start: 20060301, end: 20060401

REACTIONS (4)
  - FATIGUE [None]
  - HEPATIC ENZYME INCREASED [None]
  - JAUNDICE [None]
  - NAUSEA [None]
